FAERS Safety Report 23842485 (Version 1)
Quarter: 2024Q2

REPORT INFORMATION
  Report Type: Spontaneous
  Country: US (occurrence: US)
  Receive Date: 20240510
  Receipt Date: 20240510
  Transmission Date: 20240715
  Serious: No
  Sender: FDA-Public Use
  Company Number: US-TEVA-VS-3190658

PATIENT
  Age: 43 Year
  Sex: Female

DRUGS (9)
  1. AUSTEDO [Suspect]
     Active Substance: DEUTETRABENAZINE
     Indication: Dyskinesia
     Route: 065
     Dates: start: 20240319, end: 20240418
  2. PROPRANOLOL HCL TABLET 10 MG [Concomitant]
  3. ESCITALOPRAM OXALATE TABLET 20 MG [Concomitant]
  4. AUVELITY TABLET ER 45-105 MG [Concomitant]
  5. HYDROXYZINE HCL TABLET 25 MG [Concomitant]
  6. LURASIDONE HCL TABLET 40MG [Concomitant]
  7. LURASIDONE HCL TABLET 120MG [Concomitant]
  8. ATOMOXELINE HCL CAPSULE 25MG [Concomitant]
  9. AMBIEN TABLET 10MG [Concomitant]

REACTIONS (2)
  - Depressed mood [Unknown]
  - Product dose omission issue [Unknown]
